FAERS Safety Report 23561140 (Version 1)
Quarter: 2024Q1

REPORT INFORMATION
  Report Type: Spontaneous
  Country: NL (occurrence: NL)
  Receive Date: 20240224
  Receipt Date: 20240224
  Transmission Date: 20240409
  Serious: Yes (Other)
  Sender: FDA-Public Use
  Company Number: None

PATIENT
  Age: 67 Year
  Sex: Male
  Weight: 80 kg

DRUGS (4)
  1. AMLODIPINE [Suspect]
     Active Substance: AMLODIPINE BESYLATE
     Indication: Hypertension
     Dosage: TABLET, 10 MG (MILLIGRAM),
     Dates: start: 20230825, end: 20231219
  2. CLOPIDOGREL [Concomitant]
     Active Substance: CLOPIDOGREL BISULFATE
     Dosage: TABLET, 75 MG (MILLIGRAM)
  3. SIMVASTATIN [Concomitant]
     Active Substance: SIMVASTATIN
     Dosage: FILMOMHULDE TABLET, 40 MG (MILLIGRAM)
  4. FOSINOPRIL [Concomitant]
     Active Substance: FOSINOPRIL
     Dosage: TABLET, 10 MG (MILLIGRAM)

REACTIONS (11)
  - Oedema [Recovered/Resolved]
  - Erectile dysfunction [Recovered/Resolved]
  - Rhinorrhoea [Recovered/Resolved]
  - Syncope [Recovered/Resolved]
  - Abdominal discomfort [Recovered/Resolved]
  - Depressed mood [Recovered/Resolved]
  - Constipation [Recovered/Resolved]
  - Cough [Recovered/Resolved]
  - Dizziness [Recovered/Resolved]
  - Testis discomfort [Recovered/Resolved]
  - Muscle spasms [Recovered/Resolved]
